FAERS Safety Report 15848971 (Version 1)
Quarter: 2019Q1

REPORT INFORMATION
  Report Type: Spontaneous
  Country: RU (occurrence: RU)
  Receive Date: 20190121
  Receipt Date: 20190121
  Transmission Date: 20190417
  Serious: Yes (Other)
  Sender: FDA-Public Use
  Company Number: RU-PFIZER INC-2019022567

PATIENT
  Age: 82 Year
  Sex: Female

DRUGS (4)
  1. VASOBRAL [Concomitant]
     Dosage: UNK
  2. LYRICA [Suspect]
     Active Substance: PREGABALIN
     Dosage: 25 MG, 2X/DAY
  3. ENAP [Concomitant]
     Active Substance: ENALAPRIL
     Dosage: UNK
  4. DIACARB [Concomitant]
     Dosage: UNK

REACTIONS (1)
  - Blindness [Unknown]
